FAERS Safety Report 16083238 (Version 1)
Quarter: 2019Q1

REPORT INFORMATION
  Report Type: Spontaneous
  Country: US (occurrence: US)
  Receive Date: 20190318
  Receipt Date: 20190318
  Transmission Date: 20190418
  Serious: Yes (Disabling, Other)
  Sender: FDA-Public Use
  Company Number: US-CIPLA LTD.-2019US01408

PATIENT

DRUGS (1)
  1. WARFARIN [Suspect]
     Active Substance: WARFARIN
     Indication: ANTICOAGULANT THERAPY
     Dosage: UNK
     Route: 065

REACTIONS (4)
  - Anticoagulation drug level above therapeutic [Unknown]
  - Vertigo [Unknown]
  - Deafness neurosensory [Not Recovered/Not Resolved]
  - Ear haemorrhage [Unknown]
